FAERS Safety Report 18464890 (Version 1)
Quarter: 2020Q4

REPORT INFORMATION
  Report Type: Not Available
  Country: AU (occurrence: AU)
  Receive Date: 20201104
  Receipt Date: 20201104
  Transmission Date: 20210114
  Serious: Yes (Hospitalization)
  Sender: FDA-Public Use
  Company Number: AU-AKORN-155606

PATIENT
  Age: 46 Year

DRUGS (1)
  1. GENTAMICIN SULFATE OPHTHALMIC SOLUTION [Suspect]
     Active Substance: GENTAMICIN SULFATE

REACTIONS (2)
  - Mitochondrial toxicity [None]
  - Renal tubular dysfunction [None]
